FAERS Safety Report 10086921 (Version 2)
Quarter: 2014Q2

REPORT INFORMATION
  Report Type: Spontaneous
  Country: US (occurrence: US)
  Receive Date: 20140418
  Receipt Date: 20140424
  Transmission Date: 20141212
  Serious: Yes (Hospitalization, Disabling)
  Sender: FDA-Public Use
  Company Number: US-PERRIGO-14US003910

PATIENT
  Age: 60 Year
  Sex: Male
  Weight: 100.64 kg

DRUGS (3)
  1. PSEUDOEPHEDRINE HYDROCHLORIDE 30 MG 432 [Suspect]
     Indication: NASAL CONGESTION
     Dosage: UNK, UNK
     Route: 048
     Dates: start: 201301, end: 20130201
  2. PSEUDOEPHEDRINE HYDROCHLORIDE 30 MG 432 [Suspect]
     Indication: UPPER-AIRWAY COUGH SYNDROME
  3. PSEUDOEPHEDRINE HYDROCHLORIDE 30 MG 432 [Suspect]
     Indication: NASOPHARYNGITIS

REACTIONS (10)
  - Renal failure acute [Recovered/Resolved]
  - Urinary retention [Recovered/Resolved]
  - Urinary hesitation [Recovered/Resolved]
  - Azotaemia [Recovered/Resolved]
  - Bladder dilatation [Recovered/Resolved]
  - Abdominal discomfort [Recovered/Resolved]
  - Abdominal pain lower [Recovered/Resolved]
  - Back pain [Recovered/Resolved]
  - Abdominal distension [Recovered/Resolved]
  - Constipation [Recovered/Resolved]
